FAERS Safety Report 6029905-5 (Version None)
Quarter: 2009Q1

REPORT INFORMATION
  Report Type: 
  Country: None (occurrence: None)
  Receive Date: 20090107
  Receipt Date: 20090105
  Transmission Date: 20090719
  Serious: Yes (Hospitalization, Other)
  Sender: FDA-Public Use
  Company Number: AU-BRISTOL-MYERS SQUIBB COMPANY-14339055

PATIENT
  Age: 50 Year
  Sex: Female

DRUGS (8)
  1. ABATACEPT [Suspect]
     Indication: RHEUMATOID ARTHRITIS
     Dosage: INF:6DEC06-7NOV07,5DEC07-6NOV08. 10,30JAN:27FEB,26MAR,23APR,14MAY,11JUN,16JUL,25AUG,1SEP,9OCT08.
     Route: 042
     Dates: start: 20071205
  2. METHOTREXATE [Concomitant]
     Dosage: GIVEN ON DEC06
     Dates: start: 20020228
  3. FOLIC ACID [Concomitant]
     Dates: start: 20061208
  4. CARBAMAZEPINE [Concomitant]
     Indication: CONVULSION
     Dosage: RESTARTED ON 16SEP08-400MG;18SEP08-800MG;25SEP08-CONTI;800MG ORAL
     Route: 048
     Dates: start: 19941001, end: 20080915
  5. LAMICTAL [Concomitant]
     Indication: CONVULSION
     Dosage: 15SEP08-400MG;ORAL
     Route: 048
     Dates: start: 19941001, end: 20080914
  6. NICOPATCH [Concomitant]
     Dosage: ORAL:6 TOPICAL
     Route: 061
     Dates: start: 20080914, end: 20081001
  7. KETOPROFEN [Concomitant]
     Route: 048
     Dates: start: 20051001
  8. LAMOTRIGINE [Concomitant]
     Dosage: RESTARTED ON 15SEP-NOV08:400MG.NOV08-CONT:100MG.
     Route: 048
     Dates: start: 19941001, end: 20080914

REACTIONS (2)
  - CONVULSION [None]
  - FALL [None]
